FAERS Safety Report 19292373 (Version 3)
Quarter: 2021Q2

REPORT INFORMATION
  Report Type: Report from Study
  Country: None (occurrence: GR)
  Receive Date: 20210524
  Receipt Date: 20210620
  Transmission Date: 20210717
  Serious: Yes (Death, Hospitalization)
  Sender: FDA-Public Use
  Company Number: GR-ABBVIE-21K-066-3912494-00

PATIENT
  Age: 67 Year
  Sex: Male

DRUGS (9)
  1. LANSOPRAZOLE. [Concomitant]
     Active Substance: LANSOPRAZOLE
     Indication: OESOPHAGITIS
     Route: 048
  2. DUODOPA [Suspect]
     Active Substance: CARBIDOPA\LEVODOPA
     Indication: PARKINSON^S DISEASE
     Dosage: 3.5 ML/H DAY, 3.2 ML/H(AFTER 10 PM), ED 1.5 ML MORNING, 24H PUMP UPON MEDICAL INSTRUCTION
     Route: 050
     Dates: start: 20170509
  3. FRESUBIN PROTEIN ENERGY [Concomitant]
     Indication: SUPPLEMENTATION THERAPY
     Route: 050
  4. NEUROBION [Concomitant]
     Active Substance: CYANOCOBALAMIN\PYRIDOXINE\THIAMINE
     Indication: PRODUCT USED FOR UNKNOWN INDICATION
     Dosage: (100 + 200 + 0.2) MG 1 X 1 (ALTERNATELY WITH FILICINE)
     Route: 048
  5. MADOPAR [Concomitant]
     Active Substance: BENSERAZIDE HYDROCHLORIDE\LEVODOPA
     Indication: PARKINSON^S DISEASE
     Dosage: 1 X 1 (AT NIGHT)
     Route: 048
  6. DUPHALAC [Concomitant]
     Active Substance: LACTULOSE
     Indication: CONSTIPATION
     Route: 048
  7. FILICINE [Concomitant]
     Active Substance: FOLIC ACID
     Indication: PRODUCT USED FOR UNKNOWN INDICATION
     Dosage: 1 X 1 (ALTERNATELY WITH NEUROBION)
     Route: 048
  8. LAPRASOL [Concomitant]
     Indication: GASTROINTESTINAL DISORDER PROPHYLAXIS
     Route: 048
  9. DUODOPA [Suspect]
     Active Substance: CARBIDOPA\LEVODOPA

REACTIONS (10)
  - Pyrexia [Recovered/Resolved]
  - Gastrointestinal disorder [Unknown]
  - Aspiration [Unknown]
  - Nosocomial infection [Unknown]
  - Blood bilirubin increased [Recovering/Resolving]
  - Condition aggravated [Unknown]
  - Respiratory tract infection [Fatal]
  - Yellow skin [Recovering/Resolving]
  - Jaundice [Recovering/Resolving]
  - Cholangitis [Not Recovered/Not Resolved]

NARRATIVE: CASE EVENT DATE: 20210426
